FAERS Safety Report 21541457 (Version 3)
Quarter: 2023Q1

REPORT INFORMATION
  Report Type: Spontaneous
  Country: US (occurrence: US)
  Receive Date: 20221102
  Receipt Date: 20230117
  Transmission Date: 20230418
  Serious: Yes (Hospitalization)
  Sender: FDA-Public Use
  Company Number: US-PFIZER INC-PV202200093935

PATIENT
  Age: 68 Year
  Sex: Female
  Weight: 90.703 kg

DRUGS (2)
  1. IBRANCE [Suspect]
     Active Substance: PALBOCICLIB
     Dosage: 100 MG, CYCLIC (21 DAYS ON 7 DAYS OFF)
     Route: 048
     Dates: start: 20221201, end: 20221215
  2. HERCEPTIN HYLECTA [Concomitant]
     Active Substance: HYALURONIDASE-OYSK\TRASTUZUMAB
     Dosage: UNK

REACTIONS (3)
  - Hip arthroplasty [Unknown]
  - Tumour pain [Unknown]
  - Oral mucosal blistering [Recovering/Resolving]

NARRATIVE: CASE EVENT DATE: 20221215
